FAERS Safety Report 12382472 (Version 2)
Quarter: 2016Q2

REPORT INFORMATION
  Report Type: Spontaneous
  Country: US (occurrence: US)
  Receive Date: 20160518
  Receipt Date: 20160629
  Transmission Date: 20160815
  Serious: Yes (Other)
  Sender: FDA-Public Use
  Company Number: US-009507513-1605USA007678

PATIENT
  Age: 62 Year
  Sex: Female
  Weight: 81.63 kg

DRUGS (12)
  1. METFORMIN [Concomitant]
     Active Substance: METFORMIN HYDROCHLORIDE
     Dosage: 500 MG, 2 X DAILY
  2. OMEGA-3 MARINE TRIGLYCERIDES [Concomitant]
     Active Substance: FISH OIL
     Dosage: 5000 MG, DAILY
  3. KONSYL POWDER [Concomitant]
     Dosage: 1 TSP, DAILY
  4. GINKGO [Concomitant]
     Active Substance: GINKGO
  5. CHOLECALCIFEROL [Concomitant]
     Active Substance: CHOLECALCIFEROL
  6. JANUVIA [Suspect]
     Active Substance: SITAGLIPTIN PHOSPHATE
     Indication: TYPE 2 DIABETES MELLITUS
     Dosage: 1 PILL, ONCE A DAY
     Route: 048
     Dates: start: 20150219, end: 20150619
  7. POTASSIUM (UNSPECIFIED) [Concomitant]
     Active Substance: POTASSIUM
     Dosage: 99 MG, 2 X DAILY
  8. VITAMINS (UNSPECIFIED) [Concomitant]
     Active Substance: VITAMINS
  9. PRAVASTATIN [Concomitant]
     Active Substance: PRAVASTATIN\PRAVASTATIN SODIUM
  10. CINNAMON. [Concomitant]
     Active Substance: CINNAMON
     Dosage: 2000 MG, 2 X DAILY
  11. FLUTICASONE [Concomitant]
     Active Substance: FLUTICASONE\FLUTICASONE PROPIONATE
     Dosage: WHEN NEEDED
  12. MAGNESIUM (UNSPECIFIED) [Concomitant]
     Active Substance: MAGNESIUM

REACTIONS (3)
  - Nausea [Recovered/Resolved]
  - Vomiting [Recovered/Resolved]
  - Abdominal pain upper [Recovered/Resolved]

NARRATIVE: CASE EVENT DATE: 20150603
